FAERS Safety Report 9357759 (Version 1)
Quarter: 2013Q2

REPORT INFORMATION
  Report Type: Spontaneous
  Country: PL (occurrence: PL)
  Receive Date: 20130620
  Receipt Date: 20130620
  Transmission Date: 20140414
  Serious: Yes (Other)
  Sender: FDA-Public Use
  Company Number: PL-ASTRAZENECA-2013SE42608

PATIENT
  Age: 69 Year
  Sex: Male

DRUGS (3)
  1. ZOLADEX [Suspect]
     Route: 058
     Dates: start: 201206
  2. FLUTAMIDE [Suspect]
     Indication: PROSTATE CANCER
     Dosage: THREE TIMES A DAY
     Dates: start: 201206
  3. FLUTAMIDE [Suspect]
     Indication: PROSTATE CANCER
     Dosage: THREE TIMES A DAY
     Dates: start: 201302

REACTIONS (2)
  - Metastases to bone [Unknown]
  - Bone pain [Unknown]
